FAERS Safety Report 18160490 (Version 1)
Quarter: 2020Q3

REPORT INFORMATION
  Report Type: Spontaneous
  Country: US (occurrence: US)
  Receive Date: 20200818
  Receipt Date: 20200818
  Transmission Date: 20201103
  Serious: Yes (Other)
  Sender: FDA-Public Use
  Company Number: US-AMGEN-USASP2020132573

PATIENT
  Sex: Male

DRUGS (1)
  1. OTEZLA [Suspect]
     Active Substance: APREMILAST
     Indication: PSORIATIC ARTHROPATHY
     Dosage: UNK (STANDARD RECOMMENDED DOSE)
     Route: 065

REACTIONS (3)
  - Abdominal discomfort [Unknown]
  - Psoriatic arthropathy [Unknown]
  - Dyspepsia [Unknown]
